FAERS Safety Report 10613207 (Version 1)
Quarter: 2014Q4

REPORT INFORMATION
  Report Type: Spontaneous
  Country: CA (occurrence: CA)
  Receive Date: 20141128
  Receipt Date: 20141128
  Transmission Date: 20150529
  Serious: Yes (Disabling)
  Sender: FDA-Public Use
  Company Number: CA-009507513-1411CAN010462

PATIENT
  Age: 60 Year
  Sex: Female
  Weight: 72.56 kg

DRUGS (1)
  1. EZETROL [Suspect]
     Active Substance: EZETIMIBE
     Dosage: UNK
     Route: 065

REACTIONS (1)
  - Visual acuity reduced [Not Recovered/Not Resolved]
